FAERS Safety Report 5570534-5 (Version None)
Quarter: 2007Q4

REPORT INFORMATION
  Report Type: 
  Country: None (occurrence: None)
  Receive Date: 20071221
  Receipt Date: 20071218
  Transmission Date: 20080405
  Serious: Yes (Congenital Anomaly)
  Sender: FDA-Public Use
  Company Number: US-WYE-H01808707

PATIENT
  Sex: Male
  Weight: 3.18 kg

DRUGS (1)
  1. EFFEXOR XR [Suspect]
     Indication: DEPRESSION
     Route: 064

REACTIONS (2)
  - DRUG EXPOSURE DURING PREGNANCY [None]
  - FALLOT'S TETRALOGY [None]
